FAERS Safety Report 22223523 (Version 1)
Quarter: 2023Q2

REPORT INFORMATION
  Report Type: Spontaneous
  Country: FR (occurrence: FR)
  Receive Date: 20230418
  Receipt Date: 20230418
  Transmission Date: 20230722
  Serious: Yes (Hospitalization)
  Sender: FDA-Public Use
  Company Number: None

PATIENT
  Age: 93 Year
  Sex: Female
  Weight: 46 kg

DRUGS (5)
  1. SERTRALINE [Suspect]
     Active Substance: SERTRALINE HYDROCHLORIDE
     Indication: Depression
     Dosage: 25 MILLIGRAM, QD
     Route: 048
  2. ELIQUIS [Suspect]
     Active Substance: APIXABAN
     Indication: Atrial fibrillation
     Dosage: 2.5 MILLIGRAM, BID (2.5 MG / 1-0-1 TAB/D)
     Route: 048
     Dates: start: 2021, end: 20230123
  3. BISOPROLOL [Concomitant]
     Active Substance: BISOPROLOL
     Dosage: FORMULATION: SCORED FILM COATED TABLET
     Route: 065
  4. FUROSEMIDE [Concomitant]
     Active Substance: FUROSEMIDE
     Dosage: FORMULATION: SCORED TABLET
     Route: 065
  5. DIGOXIN [Concomitant]
     Active Substance: DIGOXIN
     Dosage: UNK
     Route: 065

REACTIONS (1)
  - Traumatic haemothorax [Recovered/Resolved]

NARRATIVE: CASE EVENT DATE: 20230105
